FAERS Safety Report 5391159-0 (Version None)
Quarter: 2007Q3

REPORT INFORMATION
  Report Type: 
  Country: None (occurrence: None)
  Receive Date: 20070719
  Receipt Date: 20070709
  Transmission Date: 20080115
  Serious: Yes (Death)
  Sender: FDA-Public Use
  Company Number: CA-JNJFOC-20070702285

PATIENT
  Sex: Female
  Weight: 44 kg

DRUGS (14)
  1. REMICADE [Suspect]
     Indication: CROHN'S DISEASE
     Dosage: 4 INFUSIONS
     Route: 042
  2. WARFARIN SODIUM [Concomitant]
     Dosage: 2 MG ALTERNATING WITH 3 MG DAILY
  3. SYNTHROID [Concomitant]
     Dosage: 25 MICROGRAM/DAY
  4. PARIET [Concomitant]
  5. PENTASA [Concomitant]
     Route: 048
  6. VERAPAMIL [Concomitant]
  7. SLOW-K [Concomitant]
  8. MAGNESIUM SULFATE [Concomitant]
  9. CHOLESTYRAMINE [Concomitant]
  10. METHOTREXATE [Concomitant]
     Route: 058
  11. FOLIC ACID [Concomitant]
  12. VITAMIN D [Concomitant]
  13. VITAMIN CAP [Concomitant]
     Dosage: 2 TABLETS DAILY
  14. MAGA CAL PLUS D [Concomitant]

REACTIONS (1)
  - DEATH [None]
